FAERS Safety Report 9486680 (Version 2)
Quarter: 2013Q4

REPORT INFORMATION
  Report Type: Spontaneous
  Country: CN (occurrence: CN)
  Receive Date: 20130829
  Receipt Date: 20131001
  Transmission Date: 20140711
  Serious: Yes (Other)
  Sender: FDA-Public Use
  Company Number: CN-B.I. PHARMACEUTICALS,INC./RIDGEFIELD-2013-BI-26705YA

PATIENT
  Age: 72 Year
  Sex: Male

DRUGS (2)
  1. HARNAL [Suspect]
     Indication: BENIGN PROSTATIC HYPERPLASIA
     Dosage: 0.2 MG
     Route: 048
     Dates: start: 20130814, end: 20130816
  2. HARNAL [Suspect]
     Indication: OLIGURIA
     Dosage: 0.2 MG
     Route: 048
     Dates: start: 20130720

REACTIONS (4)
  - Anaphylactic reaction [Unknown]
  - Pruritus [Unknown]
  - Urticaria [Not Recovered/Not Resolved]
  - Hepatic function abnormal [Not Recovered/Not Resolved]
